FAERS Safety Report 9737034 (Version 2)
Quarter: 2013Q4

REPORT INFORMATION
  Report Type: Spontaneous
  Country: US (occurrence: US)
  Receive Date: 20131206
  Receipt Date: 20131206
  Transmission Date: 20140711
  Serious: No
  Sender: FDA-Public Use
  Company Number: US-GILEAD-2009-0023726

PATIENT
  Age: 62 Year
  Sex: Female

DRUGS (15)
  1. LETAIRIS [Suspect]
     Indication: PULMONARY ARTERIAL HYPERTENSION
     Route: 048
     Dates: start: 20090709, end: 20090731
  2. WARFARIN [Concomitant]
  3. CARTIA [Concomitant]
  4. CARDIZEM CD [Concomitant]
  5. FUROSEMIDE [Concomitant]
  6. SPIRONOLACTONE [Concomitant]
  7. BENAZEPRIL [Concomitant]
  8. SPIRIVA [Concomitant]
  9. PROAIR [Concomitant]
  10. OMEPRAZOLE [Concomitant]
  11. PERFOROMIST [Concomitant]
  12. CITALOPRAM [Concomitant]
  13. ICAPS PLUS [Concomitant]
  14. ELOCON [Concomitant]
  15. PROVIGIL [Concomitant]

REACTIONS (4)
  - Increased tendency to bruise [Recovered/Resolved]
  - Prothrombin time prolonged [Unknown]
  - Headache [Recovered/Resolved]
  - Local swelling [Recovered/Resolved]
